FAERS Safety Report 21444446 (Version 4)
Quarter: 2023Q1

REPORT INFORMATION
  Report Type: Report from Study
  Country: US (occurrence: US)
  Receive Date: 20221012
  Receipt Date: 20230127
  Transmission Date: 20230418
  Serious: Yes (Hospitalization, Other)
  Sender: FDA-Public Use
  Company Number: US-ABBVIE-4150971

PATIENT
  Sex: Female

DRUGS (5)
  1. HUMIRA [Suspect]
     Active Substance: ADALIMUMAB
     Indication: Rheumatoid arthritis
     Route: 058
     Dates: start: 20211221, end: 20221208
  2. HUMIRA [Suspect]
     Active Substance: ADALIMUMAB
     Route: 058
     Dates: start: 20230117
  3. PFIZER-BIONTECH COVID-19 VACCINE [Concomitant]
     Active Substance: TOZINAMERAN
     Indication: COVID-19 immunisation
     Dosage: TIME INTERVAL: TOTAL: FREQUENCY-1-1-ONCE?FIRST DOSE
     Route: 030
     Dates: start: 20210307, end: 20210307
  4. PFIZER-BIONTECH COVID-19 VACCINE [Concomitant]
     Active Substance: TOZINAMERAN
     Indication: COVID-19 immunisation
     Dosage: TIME INTERVAL: TOTAL: FREQUENCY-1-1-ONCE?SECOND DOSE
     Route: 030
     Dates: start: 20210328, end: 20210328
  5. PFIZER-BIONTECH COVID-19 VACCINE [Concomitant]
     Active Substance: TOZINAMERAN
     Indication: COVID-19 immunisation
     Dosage: TIME INTERVAL: TOTAL: FREQUENCY-1-1-ONCE?BOOSTER DOSE
     Route: 030
     Dates: start: 20210710, end: 20210710

REACTIONS (14)
  - Pulmonary fibrosis [Unknown]
  - Blood potassium abnormal [Unknown]
  - Hypoxia [Recovered/Resolved]
  - Squamous cell carcinoma [Unknown]
  - Post-acute COVID-19 syndrome [Not Recovered/Not Resolved]
  - COVID-19 [Unknown]
  - Osteoarthritis [Not Recovered/Not Resolved]
  - Pain [Unknown]
  - Asthma [Recovered/Resolved]
  - Pain in extremity [Unknown]
  - Pneumonia [Recovered/Resolved]
  - Neck pain [Unknown]
  - Blood potassium decreased [Not Recovered/Not Resolved]
  - Gait disturbance [Unknown]

NARRATIVE: CASE EVENT DATE: 20220101
